FAERS Safety Report 13780985 (Version 1)
Quarter: 2017Q3

REPORT INFORMATION
  Report Type: Spontaneous
  Country: JP (occurrence: JP)
  Receive Date: 20170724
  Receipt Date: 20170724
  Transmission Date: 20171127
  Serious: Yes (Other)
  Sender: FDA-Public Use
  Company Number: JP-009507513-1707JPN000417J

PATIENT
  Sex: Female

DRUGS (1)
  1. MENESIT TABLETS - 100 [Suspect]
     Active Substance: CARBIDOPA\LEVODOPA
     Route: 048

REACTIONS (4)
  - Peripheral circulatory failure [Unknown]
  - Cardiac failure [Unknown]
  - Dysphagia [Unknown]
  - Hyperhidrosis [Unknown]
